FAERS Safety Report 7009725-5 (Version None)
Quarter: 2010Q3

REPORT INFORMATION
  Report Type: 
  Country: None (occurrence: None)
  Receive Date: 20100923
  Receipt Date: 20100921
  Transmission Date: 20110219
  Serious: Yes (Death, Other)
  Sender: FDA-Public Use
  Company Number: IL-SANOFI-AVENTIS-2010SA048368

PATIENT
  Age: 74 Year

DRUGS (3)
  1. TAXOTERE [Suspect]
  2. PLATINUM COMPOUNDS [Concomitant]
     Indication: HEAD AND NECK CANCER
  3. FLUOROURACIL [Concomitant]
     Indication: HEAD AND NECK CANCER

REACTIONS (3)
  - DEATH [None]
  - LARYNGEAL OEDEMA [None]
  - OEDEMA [None]
